FAERS Safety Report 8172571-3 (Version None)
Quarter: 2012Q1

REPORT INFORMATION
  Report Type: 
  Country: None (occurrence: None)
  Receive Date: 20120229
  Receipt Date: 20120224
  Transmission Date: 20120608
  Serious: No
  Sender: FDA-Public Use
  Company Number: US-PFIZER INC-2012008864

PATIENT
  Sex: Female

DRUGS (7)
  1. TIKOSYN [Suspect]
     Indication: ARRHYTHMIA
     Dosage: 0.25 MG, 2X/DAY
     Route: 048
     Dates: start: 20110810
  2. NORTRIPTYLINE [Concomitant]
     Indication: SLEEP DISORDER
     Dosage: 10 MG, UNK
  3. PANTOPRAZOLE [Concomitant]
     Indication: GASTRIC DISORDER
     Dosage: 40 MG, UNK
  4. SIMVASTATIN [Concomitant]
     Indication: BLOOD CHOLESTEROL INCREASED
     Dosage: 20 MG, UNK
  5. AMLODIPINE [Concomitant]
     Indication: CARDIAC DISORDER
  6. FLONASE [Concomitant]
     Indication: SINUSITIS
     Dosage: UNK
     Route: 045
  7. AMLODIPINE [Concomitant]
     Indication: HYPERTENSION
     Dosage: 5 MG, UNK

REACTIONS (1)
  - DRUG INEFFECTIVE [None]
